FAERS Safety Report 8934364 (Version 2)
Quarter: 2013Q1

REPORT INFORMATION
  Report Type: Spontaneous
  Country: FR (occurrence: FR)
  Receive Date: 20121129
  Receipt Date: 20130206
  Transmission Date: 20140127
  Serious: Yes (Hospitalization)
  Sender: FDA-Public Use
  Company Number: FR-ASTRAZENECA-2012SE88664

PATIENT
  Age: 28642 Day
  Sex: Male

DRUGS (8)
  1. CRESTOR [Suspect]
     Dosage: DAILY
     Route: 048
     Dates: start: 201209
  2. CRESTOR [Suspect]
     Dosage: DAILY
     Route: 048
  3. PREVISCAN [Suspect]
     Dosage: DAILY
     Route: 048
     Dates: end: 20121003
  4. PREVISCAN [Suspect]
     Dosage: DAILY
     Route: 048
  5. INIPOMP [Concomitant]
  6. LEVOTHYROX [Concomitant]
  7. ODRIK [Concomitant]
  8. LANTUS [Concomitant]

REACTIONS (4)
  - Anaemia [Recovered/Resolved]
  - Melaena [Recovered/Resolved]
  - Asthenia [Unknown]
  - International normalised ratio increased [Recovered/Resolved]
